FAERS Safety Report 12658719 (Version 2)
Quarter: 2016Q4

REPORT INFORMATION
  Report Type: Report from Study
  Country: DE (occurrence: DE)
  Receive Date: 20160817
  Receipt Date: 20161201
  Transmission Date: 20170207
  Serious: Yes (Death, Other)
  Sender: FDA-Public Use
  Company Number: DE-ROCHE-1814365

PATIENT

DRUGS (5)
  1. COUMADINE [Concomitant]
     Active Substance: WARFARIN SODIUM
     Indication: MEDICAL DEVICE SITE THROMBOSIS
  2. ACETYLSALICYLIC ACID [Concomitant]
     Active Substance: ASPIRIN
     Indication: MEDICAL DEVICE SITE THROMBOSIS
     Route: 065
  3. HEPARIN [Suspect]
     Active Substance: HEPARIN SODIUM
     Indication: MEDICAL DEVICE SITE THROMBOSIS
     Route: 042
  4. CLOPIDOGREL [Concomitant]
     Active Substance: CLOPIDOGREL BISULFATE
     Indication: MEDICAL DEVICE SITE THROMBOSIS
     Route: 048
  5. ALTEPLASE [Suspect]
     Active Substance: ALTEPLASE
     Indication: MEDICAL DEVICE SITE THROMBOSIS
     Route: 042

REACTIONS (3)
  - Heparin-induced thrombocytopenia [Unknown]
  - Haemorrhage [Unknown]
  - Death [Fatal]
